FAERS Safety Report 5885106-2 (Version None)
Quarter: 2008Q3

REPORT INFORMATION
  Report Type: 
  Country: None (occurrence: None)
  Receive Date: 20080916
  Receipt Date: 20080908
  Transmission Date: 20090109
  Serious: Yes (Death)
  Sender: FDA-Public Use
  Company Number: JP-MERCK-0809USA01628

PATIENT
  Age: 60 Year
  Sex: Female

DRUGS (3)
  1. CLINORIL [Suspect]
     Route: 048
  2. VOLTAREN [Suspect]
     Route: 054
  3. BREDININ [Suspect]
     Route: 048

REACTIONS (2)
  - PANCYTOPENIA [None]
  - RENAL FAILURE ACUTE [None]
